FAERS Safety Report 8439358-5 (Version None)
Quarter: 2012Q2

REPORT INFORMATION
  Report Type: 
  Country: None (occurrence: None)
  Receive Date: 20120615
  Receipt Date: 20120612
  Transmission Date: 20120825
  Serious: Yes (Other)
  Sender: FDA-Public Use
  Company Number: PHHY2011JP17452

PATIENT
  Age: 66 Year
  Sex: Male

DRUGS (1)
  1. IMATINIB MESYLATE [Suspect]
     Indication: GASTROINTESTINAL STROMAL TUMOUR
     Dosage: 400 MG, DAILY
     Route: 048
     Dates: start: 20080117, end: 20100517

REACTIONS (5)
  - METASTASES TO LIVER [None]
  - NEOPLASM PROGRESSION [None]
  - TUMOUR NECROSIS [None]
  - DISSEMINATED INTRAVASCULAR COAGULATION [None]
  - NEOPLASM MALIGNANT [None]
